FAERS Safety Report 5840029-X (Version None)
Quarter: 2008Q3

REPORT INFORMATION
  Report Type: 
  Country: None (occurrence: None)
  Receive Date: 20080811
  Receipt Date: 20080728
  Transmission Date: 20090109
  Serious: Yes (Hospitalization)
  Sender: FDA-Public Use
  Company Number: CH-ROCHE-578237

PATIENT
  Age: 29 Year
  Sex: Female

DRUGS (9)
  1. CELLCEPT [Suspect]
     Indication: DRUG USE FOR UNKNOWN INDICATION
     Route: 041
  2. CELLCEPT [Suspect]
     Dosage: DOSAGE REGIMEN: 3 DAY(S), DOSE INCREASED FORMULATION: INFUSION AMPOULE.
     Route: 041
  3. METRONIDAZOLE [Interacting]
     Indication: DRUG USE FOR UNKNOWN INDICATION
     Dosage: DOSAGE REGIMEN: 3 DAY (S), DRUG WITHDRAWN FORMULATION: INFUSION AMPOULES, BAGS.
     Route: 041
     Dates: start: 20080512, end: 20080530
  4. NEXIUM [Concomitant]
     Dosage: DOSAGE REGIMEN: 1 DAY (S).
     Route: 048
  5. ALDACTONE [Concomitant]
     Dosage: DOSAGE REGIMEN: 1 DAY (S).
     Dates: start: 20080510, end: 20080526
  6. CITALOPRAM HYDROBROMIDE [Concomitant]
     Dosage: DOSAGE REGIMEN: 1 DAY (S).
     Route: 048
  7. POSACONAZOLE [Concomitant]
     Dosage: DOSAGE REGIMEN: 3 DAY (S)
     Route: 048
     Dates: start: 20080411, end: 20080602
  8. PREDNISONE [Concomitant]
     Dosage: DOSAGE REGIMEN: 1 DAY (S)
     Route: 048
  9. VALTREX [Concomitant]
     Dosage: DOSAGE REGIMEN: 1 DAY (S)
     Route: 048
     Dates: start: 20080411

REACTIONS (3)
  - DRUG INTERACTION [None]
  - GRAFT VERSUS HOST DISEASE [None]
  - THROMBOTIC THROMBOCYTOPENIC PURPURA [None]
